FAERS Safety Report 9210058 (Version 1)
Quarter: 2012Q4

REPORT INFORMATION
  Report Type: 
  Country: BR (occurrence: BR)
  Receive Date: 20120903
  Receipt Date: 20120903
  Transmission Date: 20130627
  Serious: Yes (Other)
  Sender: FDA-Public Use
  Company Number: PHHY2012BR075549

PATIENT
  Sex: Male

DRUGS (2)
  1. GALVUS MET [Suspect]
  2. DIOVAN AMLO FIX [Suspect]
     Indication: HYPERTENSION
     Dosage: 1 DF (160/10 mg), QD (morning)

REACTIONS (2)
  - Cerebrovascular accident [Recovered/Resolved]
  - Oedema peripheral [Recovered/Resolved]
